FAERS Safety Report 9432922 (Version 1)
Quarter: 2013Q3

REPORT INFORMATION
  Report Type: Spontaneous
  Country: US (occurrence: US)
  Receive Date: 20130731
  Receipt Date: 20130731
  Transmission Date: 20140515
  Serious: Yes (Other)
  Sender: FDA-Public Use
  Company Number: US-ROXANE LABORATORIES, INC.-2013-RO-01239RO

PATIENT
  Sex: Female

DRUGS (4)
  1. DIGOXIN [Suspect]
  2. REVATIO [Suspect]
  3. AMIODARONE HCL [Suspect]
  4. PROSTACYCLIN [Suspect]

REACTIONS (1)
  - Pulmonary arterial hypertension [Unknown]
